FAERS Safety Report 9458186 (Version 1)
Quarter: 2013Q3

REPORT INFORMATION
  Report Type: Spontaneous
  Country: US (occurrence: None)
  Receive Date: 20130812
  Receipt Date: 20130812
  Transmission Date: 20140515
  Serious: Yes (Other)
  Sender: FDA-Public Use
  Company Number: 2013AP007017

PATIENT
  Age: 64 Year
  Sex: Female

DRUGS (8)
  1. FLUVOXAMINE MALEATE [Suspect]
  2. ALPRAZOLAM [Suspect]
  3. RILUZOLE [Suspect]
  4. KETAMINE [Suspect]
     Route: 041
  5. ACETYLCYSTEINE [Suspect]
  6. SELECTIVE SEROTONIN REUPTAKE INHIBITORS [Concomitant]
  7. REUPTAKE INHIBITORS [Concomitant]
  8. ANTIPSYCHOTICS [Concomitant]

REACTIONS (7)
  - Suicidal ideation [None]
  - Dysphoria [None]
  - Anxiety [None]
  - Depersonalisation [None]
  - Paraesthesia [None]
  - Nausea [None]
  - Drug interaction [None]
